FAERS Safety Report 4565459-8 (Version None)
Quarter: 2005Q1

REPORT INFORMATION
  Report Type: 
  Country: None (occurrence: None)
  Receive Date: 20050125
  Receipt Date: 20050125
  Transmission Date: 20050727
  Serious: Yes (Death, Life-Threatening, Hospitalization)
  Sender: FDA-Public Use
  Company Number: None

PATIENT
  Age: 22 Year
  Sex: Male
  Weight: 80 kg

DRUGS (3)
  1. NAPROSYN [Suspect]
     Indication: MIGRAINE
     Dosage: 500MG   OM   ORAL
     Route: 048
     Dates: start: 20050101, end: 20050122
  2. PONSTAN   250MG [Suspect]
     Indication: BONE DISORDER
     Dosage: 500MG  TDS   ORAL
     Route: 048
     Dates: start: 20001201, end: 20041231
  3. FAMOTIDINE [Concomitant]

REACTIONS (3)
  - GASTRIC HAEMORRHAGE [None]
  - HAEMATEMESIS [None]
  - MELAENA [None]
